FAERS Safety Report 17847554 (Version 2)
Quarter: 2020Q2

REPORT INFORMATION
  Report Type: Report from Study
  Country: US (occurrence: US)
  Receive Date: 20200601
  Receipt Date: 20200624
  Transmission Date: 20200714
  Serious: Yes (Hospitalization)
  Sender: FDA-Public Use
  Company Number: US-PUMA BIOTECHNOLOGY, LTD.-2020US001093

PATIENT

DRUGS (8)
  1. NERLYNX [Suspect]
     Active Substance: NERATINIB
     Indication: HORMONE RECEPTOR POSITIVE BREAST CANCER
     Dosage: 120 MG (3 TABLETS), DAILY
     Route: 048
     Dates: start: 202002, end: 202002
  2. NERLYNX [Suspect]
     Active Substance: NERATINIB
     Indication: BREAST CANCER FEMALE
     Dosage: 240 MG (6 TABLETS), DAILY
     Route: 048
     Dates: start: 20200214, end: 202002
  3. LOMOTIL [Concomitant]
     Active Substance: ATROPINE SULFATE\DIPHENOXYLATE HYDROCHLORIDE
     Indication: PROPHYLAXIS AGAINST DIARRHOEA
  4. PEPCID [Concomitant]
     Active Substance: FAMOTIDINE
     Indication: PRODUCT USED FOR UNKNOWN INDICATION
  5. IMODIUM [Concomitant]
     Active Substance: LOPERAMIDE HYDROCHLORIDE
     Indication: PROPHYLAXIS AGAINST DIARRHOEA
     Dosage: 4 MG, TID
     Dates: start: 20200214
  6. NERLYNX [Suspect]
     Active Substance: NERATINIB
     Dosage: 240 MG (6 TABLETS), DAILY
     Route: 048
     Dates: start: 20200416, end: 202005
  7. BUDESONIDE. [Concomitant]
     Active Substance: BUDESONIDE
     Indication: PROPHYLAXIS AGAINST DIARRHOEA
  8. TUMS [Concomitant]
     Active Substance: CALCIUM CARBONATE
     Indication: PRODUCT USED FOR UNKNOWN INDICATION

REACTIONS (4)
  - Hospitalisation [Unknown]
  - Somnolence [Unknown]
  - Fatigue [Not Recovered/Not Resolved]
  - Diarrhoea [Not Recovered/Not Resolved]

NARRATIVE: CASE EVENT DATE: 202002
